FAERS Safety Report 6099889-2 (Version None)
Quarter: 2009Q1

REPORT INFORMATION
  Report Type: 
  Country: None (occurrence: None)
  Receive Date: 20090303
  Receipt Date: 20090219
  Transmission Date: 20090719
  Serious: Yes (Other)
  Sender: FDA-Public Use
  Company Number: BE-TEVA-186135ISR

PATIENT
  Sex: Female

DRUGS (4)
  1. COPAXONE [Suspect]
     Dates: start: 20080409
  2. PANTOPRAZOLE SODIUM [Concomitant]
  3. PRAZEPAM [Concomitant]
  4. ZOLPIDEM [Concomitant]

REACTIONS (1)
  - SKIN NECROSIS [None]
